FAERS Safety Report 23581147 (Version 2)
Quarter: 2024Q1

REPORT INFORMATION
  Report Type: Report from Study
  Country: GB (occurrence: GB)
  Receive Date: 20240229
  Receipt Date: 20240306
  Transmission Date: 20240410
  Serious: Yes (Other)
  Sender: FDA-Public Use
  Company Number: GB-002147023-NVSC2020GB198696

PATIENT
  Sex: Female

DRUGS (1)
  1. OMNITROPE [Suspect]
     Active Substance: SOMATROPIN
     Indication: Hypopituitarism
     Dosage: UNK (DOSE: ASD, FREQUENCY: ASD)
     Route: 058

REACTIONS (3)
  - Hypothalamo-pituitary disorder [Unknown]
  - Memory impairment [Unknown]
  - Product dose omission issue [Unknown]
